FAERS Safety Report 8908153 (Version 2)
Quarter: 2012Q4

REPORT INFORMATION
  Report Type: 
  Country: US (occurrence: US)
  Receive Date: 20121114
  Receipt Date: 20121128
  Transmission Date: 20130627
  Serious: Yes (Hospitalization)
  Sender: FDA-Public Use
  Company Number: PHHO2012US016166

PATIENT
  Age: 71 Year
  Sex: Male
  Weight: 130.61 kg

DRUGS (13)
  1. BLINDED ACZ885 [Suspect]
     Indication: CARDIOVASCULAR EVENT PROPHYLAXIS
     Dosage: Double blinded
     Dates: start: 20110526
  2. BLINDED NO TREATMENT RECEIVED [Suspect]
     Indication: CARDIOVASCULAR EVENT PROPHYLAXIS
     Dosage: Double blinded
     Dates: start: 20110526
  3. BLINDED PLACEBO [Suspect]
     Indication: CARDIOVASCULAR EVENT PROPHYLAXIS
     Dosage: Double blinded
     Dates: start: 20110526
  4. LISINOPRIL [Suspect]
  5. FUROSEMIDE [Suspect]
     Indication: CARDIAC FAILURE CONGESTIVE
     Dosage: 20 mg, QD
     Route: 048
  6. RANEXA [Concomitant]
     Indication: ANGINA PECTORIS
     Dosage: 1000 mg, BID
     Route: 048
     Dates: end: 20121115
  7. ISOSORBIDE MONONITRATE [Concomitant]
     Indication: ANGINA PECTORIS
     Dosage: 30 mg, QD
     Route: 048
     Dates: end: 20121115
  8. METOPROLOL [Concomitant]
     Indication: HYPERTENSION
     Dosage: 50 mg, QD
     Route: 048
  9. ENALAPRIL [Concomitant]
     Indication: HYPERTENSION
     Dosage: 10 mg, QD
     Route: 048
     Dates: end: 20121115
  10. CRESTOR [Concomitant]
     Indication: HYPERLIPIDAEMIA
     Dosage: 40 mg, UNK
     Route: 048
     Dates: end: 20121115
  11. BYSTOLIC [Concomitant]
     Indication: HYPERTENSION
     Dosage: 10 mg, QD
     Route: 048
  12. TOPROL XL [Concomitant]
     Indication: HYPERTENSION
     Dosage: 25 mg, QD
     Route: 048
     Dates: end: 20121115
  13. CLOPIDOGREL [Concomitant]
     Indication: ANTIPLATELET THERAPY
     Dosage: 75 mg, QD
     Route: 048
     Dates: end: 20121115

REACTIONS (3)
  - Cardiac failure congestive [Recovering/Resolving]
  - Chronic obstructive pulmonary disease [Recovered/Resolved]
  - Chest pain [Recovering/Resolving]
